FAERS Safety Report 9300972 (Version 4)
Quarter: 2013Q3

REPORT INFORMATION
  Report Type: Spontaneous
  Country: US (occurrence: US)
  Receive Date: 20130521
  Receipt Date: 20130806
  Transmission Date: 20140515
  Serious: Yes (Other)
  Sender: FDA-Public Use
  Company Number: US-PFIZER INC-2013150697

PATIENT
  Sex: Male
  Weight: 175 kg

DRUGS (15)
  1. NAVANE [Suspect]
     Indication: PSYCHOTIC DISORDER
     Dosage: 5 MG, 1X/DAY
     Route: 048
  2. NAVANE [Suspect]
     Indication: BIPOLAR DISORDER
     Dosage: 10 MG, 3X/DAY
     Route: 048
     Dates: start: 1978, end: 201305
  3. PAXIL [Concomitant]
     Dosage: UNK
  4. TRILEPTAL [Concomitant]
     Dosage: UNK
  5. ABILIFY [Concomitant]
     Dosage: UNK
  6. KLONOPIN [Concomitant]
     Indication: BIPOLAR DISORDER
     Dosage: UNK
  7. METOPROLOL [Concomitant]
     Dosage: UNK
  8. HYZAAR [Concomitant]
     Dosage: UNK
  9. KLOR-CON [Concomitant]
     Dosage: UNK
  10. ASPIRIN [Concomitant]
     Dosage: UNK
  11. LASIX [Concomitant]
     Indication: HYPERTENSION
     Dosage: UNK
  12. TAMSULOSIN [Concomitant]
     Indication: PROSTATIC DISORDER
     Dosage: UNK
  13. RANITIDINE [Concomitant]
     Indication: GASTROOESOPHAGEAL REFLUX DISEASE
     Dosage: UNK
  14. LEVOTHYROXINE [Concomitant]
     Indication: HYPOTHYROIDISM
     Dosage: UNK
  15. GERITOL [Concomitant]
     Indication: VITAMIN SUPPLEMENTATION
     Dosage: UNK

REACTIONS (6)
  - Paranoia [Unknown]
  - Tardive dyskinesia [Unknown]
  - Sexual dysfunction [Recovered/Resolved with Sequelae]
  - Drug ineffective [Unknown]
  - Obesity [Recovered/Resolved with Sequelae]
  - Libido increased [Unknown]
